FAERS Safety Report 14774547 (Version 1)
Quarter: 2018Q2

REPORT INFORMATION
  Report Type: Spontaneous
  Country: US (occurrence: US)
  Receive Date: 20180411
  Receipt Date: 20180411
  Transmission Date: 20180711
  Serious: No
  Sender: FDA-Public Use
  Company Number: None

PATIENT
  Age: 92 Year
  Sex: Female

DRUGS (9)
  1. ARICEPT [Concomitant]
     Active Substance: DONEPEZIL HYDROCHLORIDE
  2. ALLEGRA-D [Concomitant]
     Active Substance: FEXOFENADINE\PSEUDOEPHEDRINE
  3. MULTIVIT [Concomitant]
     Active Substance: VITAMINS
  4. BENZONATATE. [Concomitant]
     Active Substance: BENZONATATE
  5. KEPPRA [Suspect]
     Active Substance: LEVETIRACETAM
     Indication: SEIZURE
     Route: 048
     Dates: start: 20180322, end: 20180404
  6. ASA [Concomitant]
     Active Substance: ASPIRIN
  7. ACTONEL [Concomitant]
     Active Substance: RISEDRONATE SODIUM
  8. ANTIVERT [Concomitant]
     Active Substance: MECLIZINE HYDROCHLORIDE
  9. CHOLESTYRAMINE. [Concomitant]
     Active Substance: CHOLESTYRAMINE

REACTIONS (2)
  - Decreased appetite [None]
  - Somnolence [None]

NARRATIVE: CASE EVENT DATE: 20180404
